FAERS Safety Report 10190010 (Version 3)
Quarter: 2014Q3

REPORT INFORMATION
  Report Type: Report from Study
  Country: AT (occurrence: AT)
  Receive Date: 20140522
  Receipt Date: 20140910
  Transmission Date: 20150326
  Serious: Yes (Hospitalization)
  Sender: FDA-Public Use
  Company Number: AT-AMGEN-AUTCT2014036318

PATIENT
  Age: 68 Year
  Sex: Female

DRUGS (10)
  1. NOVOTHYRAL [Concomitant]
     Active Substance: LEVOTHYROXINE SODIUM\LIOTHYRONINE SODIUM
     Dosage: UNK UNK, QD
     Route: 048
  2. KALIORAL                           /00252502/ [Concomitant]
     Dosage: UNK UNK, QD
     Route: 048
  3. FOSITENS [Concomitant]
     Active Substance: FOSINOPRIL SODIUM
     Dosage: 20 MG, QD
     Route: 048
  4. NEXIUM [Concomitant]
     Active Substance: ESOMEPRAZOLE MAGNESIUM
     Dosage: 40 MG, QD
     Route: 048
  5. SEROQUEL [Concomitant]
     Active Substance: QUETIAPINE FUMARATE
     Dosage: 25 MG, QD
     Route: 048
  6. MAGNONORM-GENERICON [Concomitant]
     Dosage: UNK UNK, QD
     Route: 048
  7. SPIRONO COMP [Concomitant]
     Dosage: UNK UNK, QD
     Route: 048
  8. DENOSUMAB [Suspect]
     Active Substance: DENOSUMAB
     Indication: BONE DENSITY DECREASED
     Dosage: UNK
     Route: 058
     Dates: start: 20071025
  9. METOHEXAL                          /00376902/ [Concomitant]
     Active Substance: METOPROLOL SUCCINATE
     Dosage: 0.5 MG, QD
     Route: 048
  10. CYMBALTA [Concomitant]
     Active Substance: DULOXETINE HYDROCHLORIDE
     Dosage: 60 MG, QD
     Route: 048

REACTIONS (1)
  - Gastroenteritis [Recovered/Resolved]

NARRATIVE: CASE EVENT DATE: 201310
